FAERS Safety Report 9537879 (Version 4)
Quarter: 2014Q4

REPORT INFORMATION
  Report Type: Spontaneous
  Country: JP (occurrence: JP)
  Receive Date: 20130919
  Receipt Date: 20141024
  Transmission Date: 20150529
  Serious: Yes (Other)
  Sender: FDA-Public Use
  Company Number: JP-009507513-1309JPN006561

PATIENT
  Age: 58 Year
  Sex: Female
  Weight: 46 kg

DRUGS (6)
  1. BRIDION [Suspect]
     Active Substance: SUGAMMADEX
     Indication: NEUROMUSCULAR BLOCKADE REVERSAL
     Dosage: TCI 4 MG/ML, DAILY DOSAGE UNKNOWN
     Route: 042
     Dates: start: 20130501, end: 20130501
  2. REMIFENTANIL HYDROCHLORIDE [Concomitant]
     Active Substance: REMIFENTANIL HYDROCHLORIDE
     Indication: INDUCTION OF ANAESTHESIA
     Dosage: DAILY DOSAGE UNKNOWN DOSAGE TEXT 0.5MG/H
  3. ESLAX [Suspect]
     Active Substance: ROCURONIUM BROMIDE
     Indication: NEUROMUSCULAR BLOCKING THERAPY
     Dosage: 30 MG, ONCE
     Route: 042
     Dates: start: 20130501, end: 20130501
  4. PROPOFOL. [Concomitant]
     Active Substance: PROPOFOL
     Indication: INDUCTION OF ANAESTHESIA
     Dosage: DAILY DOSAGE UNKNOWN 25UG/ML
  5. NICORANDIL [Concomitant]
     Active Substance: NICORANDIL
     Indication: ARTERIOSPASM CORONARY
     Dosage: 2 MG, INTERVAL: 1 H
     Route: 042
     Dates: start: 20130501, end: 20130501
  6. FENTANYL. [Concomitant]
     Active Substance: FENTANYL
     Indication: NEUROMUSCULAR BLOCKING THERAPY
     Dosage: 2 ML, QD
     Route: 042
     Dates: start: 20130501, end: 20130501

REACTIONS (2)
  - Laryngospasm [Recovered/Resolved]
  - Anaphylactic reaction [Recovered/Resolved]

NARRATIVE: CASE EVENT DATE: 20130501
